FAERS Safety Report 16765308 (Version 2)
Quarter: 2019Q3

REPORT INFORMATION
  Report Type: Spontaneous
  Country: US (occurrence: US)
  Receive Date: 20190903
  Receipt Date: 20190906
  Transmission Date: 20191005
  Serious: No
  Sender: FDA-Public Use
  Company Number: US-ASTRAZENECA-2019SF24928

PATIENT
  Sex: Female

DRUGS (1)
  1. NEXIUM 24HR [Suspect]
     Active Substance: ESOMEPRAZOLE MAGNESIUM
     Dosage: UNKNOWN
     Route: 048

REACTIONS (6)
  - Reaction to excipient [Unknown]
  - Malaise [Unknown]
  - Muscle spasms [Unknown]
  - Abdominal discomfort [Unknown]
  - Expired product administered [Unknown]
  - Vomiting [Unknown]
